FAERS Safety Report 8836627 (Version 1)
Quarter: 2012Q4

REPORT INFORMATION
  Report Type: Spontaneous
  Country: US (occurrence: None)
  Receive Date: 20121010
  Receipt Date: 20121010
  Transmission Date: 20130627
  Serious: Yes (Other)
  Sender: FDA-Public Use
  Company Number: 2012AP003283

PATIENT
  Age: 10 Year
  Sex: Female
  Weight: 35 kg

DRUGS (11)
  1. ONDANSETRON [Suspect]
     Indication: NAUSEA
     Route: 042
  2. PROPOFOL [Suspect]
     Indication: INTUBATION
  3. MIDAZOLAM [Suspect]
     Route: 048
  4. SEVOFLURANE [Suspect]
     Indication: GENERAL ANAESTHESIA
  5. ALFENTANIL [Suspect]
     Indication: INTUBATION
  6. FENTANYL [Suspect]
  7. MORPHINE [Suspect]
  8. KETOROLAC [Suspect]
     Route: 042
  9. DEXAMETHASONE [Suspect]
     Route: 042
  10. ROPIVACAINE [Suspect]
     Route: 042
  11. PARACETAMOL/CODEINE PHOSPHATE [Suspect]

REACTIONS (3)
  - Nausea [None]
  - Periodic limb movement disorder [None]
  - No therapeutic response [None]
